FAERS Safety Report 8813579 (Version 1)
Quarter: 2012Q4

REPORT INFORMATION
  Report Type: 
  Country: US (occurrence: US)
  Receive Date: 20120927
  Receipt Date: 20120927
  Transmission Date: 20130627
  Serious: No
  Sender: FDA-Public Use
  Company Number: US-AMGEN-USASP2012035625

PATIENT
  Age: 62 Year
  Sex: Female
  Weight: 113.38 kg

DRUGS (31)
  1. PROLIA [Suspect]
     Indication: OSTEOPOROSIS POSTMENOPAUSAL
     Dosage: 60 mg, q6mo
     Dates: start: 20120604
  2. VITAMIN D3 [Concomitant]
     Dosage: UNK
  3. LIPITOR [Concomitant]
     Indication: BLOOD CHOLESTEROL INCREASED
     Dosage: 20 mg, qd
  4. NORVASC [Concomitant]
     Indication: HYPERTENSION
     Dosage: 5 mg, qd
  5. LOVAZA [Concomitant]
     Indication: BLOOD TRIGLYCERIDES INCREASED
     Dosage: UNK
  6. LEXAPRO [Concomitant]
     Dosage: 20 mg, qd
  7. SEROQUEL [Concomitant]
     Dosage: 100 mg, qd
  8. ABILIFY [Concomitant]
     Dosage: 10 mg, qd
  9. CENTRUM SILVER [Concomitant]
     Dosage: UNK
  10. VITAMIN B12 [Concomitant]
     Dosage: UNK
  11. VITAMIN B COMPLEX [Concomitant]
     Dosage: UNK
  12. GRAPE SEED EXTRACT [Concomitant]
     Dosage: UNK
  13. COQ10 [Concomitant]
     Dosage: UNK
  14. CALCIUM [Concomitant]
     Dosage: UNK
  15. POTASSIUM [Concomitant]
     Dosage: UNK
  16. LASIX [Concomitant]
     Dosage: 40 mg, qd
  17. COLACE [Concomitant]
     Dosage: 100 mg, qd
  18. FISH OIL [Concomitant]
     Dosage: UNK
  19. FLUOCINONIDE [Concomitant]
     Dosage: UNK
  20. FOSAMAX [Concomitant]
     Dosage: 70 mg, qwk
  21. GLUCOPHAGE [Concomitant]
     Dosage: UNK
  22. HYDROCORTISONE [Concomitant]
     Dosage: UNK
  23. KLOR-CON M10 [Concomitant]
     Dosage: UNK
  24. LIPODERM [Concomitant]
     Dosage: UNK
  25. MAGNESIUM OXIDE [Concomitant]
     Dosage: UNK
  26. MULTIVITAMIN [Concomitant]
     Dosage: UNK
  27. NEURONTIN [Concomitant]
     Dosage: UNK
  28. NOVOLOG [Concomitant]
     Dosage: UNK
  29. TRAMADOL HYDROCHLORIDE [Concomitant]
     Dosage: UNK
  30. TRIAMCINOLONE ACETONIDE [Concomitant]
     Dosage: UNK
  31. TYLENOL [Concomitant]
     Dosage: 650 mg, prn

REACTIONS (3)
  - Oral disorder [Not Recovered/Not Resolved]
  - Stomatitis [Not Recovered/Not Resolved]
  - Injection site pain [Not Recovered/Not Resolved]
